FAERS Safety Report 9034864 (Version 2)
Quarter: 2013Q1

REPORT INFORMATION
  Report Type: Spontaneous
  Country: DK (occurrence: None)
  Receive Date: 20130116
  Receipt Date: 20130131
  Transmission Date: 20140127
  Serious: Yes (Life-Threatening)
  Sender: FDA-Public Use
  Company Number: 2013MA000351

PATIENT
  Age: 69 Year
  Sex: Male

DRUGS (5)
  1. DOXYCYCLINE HYCLATE DELAYED-RELEASE TABLETS 100MG (BASE) (AELLC) (DOXYCYCLINE) [Suspect]
     Indication: ANTIBIOTIC PROPHYLAXIS
     Dates: start: 20121219, end: 20121219
  2. SUXAMETHONIUM [Suspect]
     Indication: ANAESTHESIA PROCEDURE
     Route: 042
     Dates: start: 20121219, end: 20121219
  3. THIOPENTAL [Concomitant]
  4. FENTANYL [Concomitant]
  5. SUXAMETHONIUM (PREV.) UNKNOWN  UNKNOWN [Concomitant]

REACTIONS (1)
  - No reaction on previous exposure to drug [None]
